FAERS Safety Report 10985317 (Version 1)
Quarter: 2015Q2

REPORT INFORMATION
  Report Type: Spontaneous
  Country: US (occurrence: US)
  Receive Date: 20150404
  Receipt Date: 20150404
  Transmission Date: 20150821
  Serious: No
  Sender: FDA-Public Use
  Company Number: US-SA-2014SA037812

PATIENT
  Age: 65 Year
  Sex: Female

DRUGS (1)
  1. ALLEGRA-D [Suspect]
     Active Substance: FEXOFENADINE\PSEUDOEPHEDRINE
     Indication: HYPERSENSITIVITY
     Dosage: 180/ 240 MG DAILY
     Route: 065

REACTIONS (6)
  - Incorrect dose administered [Unknown]
  - Feeling jittery [Unknown]
  - Drug ineffective [Unknown]
  - Malaise [Unknown]
  - Heart rate increased [Unknown]
  - Tremor [Unknown]
